FAERS Safety Report 8494527-3 (Version None)
Quarter: 2012Q3

REPORT INFORMATION
  Report Type: 
  Country: None (occurrence: None)
  Receive Date: 20120709
  Receipt Date: 20120626
  Transmission Date: 20120928
  Serious: Yes (Other)
  Sender: FDA-Public Use
  Company Number: AT-JNJFOC-20120614460

PATIENT
  Age: 75 Year
  Sex: Male

DRUGS (2)
  1. IMODIUM [Suspect]
     Indication: DIARRHOEA
     Route: 065
  2. ANTIBIOTICS [Concomitant]
     Route: 065

REACTIONS (2)
  - FAECALOMA [None]
  - ARRHYTHMIA [None]
